FAERS Safety Report 8883637 (Version 1)
Quarter: 2012Q4

REPORT INFORMATION
  Report Type: 
  Country: US (occurrence: US)
  Receive Date: 20121102
  Receipt Date: 20121102
  Transmission Date: 20130627
  Serious: No
  Sender: FDA-Public Use
  Company Number: US-ASTRAZENECA-2012SE01043

PATIENT
  Sex: Female

DRUGS (3)
  1. CRESTOR [Suspect]
     Indication: BLOOD CHOLESTEROL INCREASED
     Dosage: 2 TO 3 TIMES A WEEK
     Route: 048
  2. CRESTOR [Suspect]
     Indication: BLOOD CHOLESTEROL INCREASED
     Dosage: HALF TABLET THREE TIMESA WEEK
     Route: 048
  3. ZETIA [Concomitant]

REACTIONS (2)
  - Muscle spasms [Recovering/Resolving]
  - Wrong technique in drug usage process [Unknown]
